FAERS Safety Report 19001898 (Version 1)
Quarter: 2021Q1

REPORT INFORMATION
  Report Type: Spontaneous
  Country: US (occurrence: US)
  Receive Date: 20210312
  Receipt Date: 20210312
  Transmission Date: 20210420
  Serious: Yes (Other)
  Sender: FDA-Public Use
  Company Number: US-GLAXOSMITHKLINE-US2021GSK035457

PATIENT
  Sex: Female

DRUGS (18)
  1. ZANTAC [Suspect]
     Active Substance: RANITIDINE HYDROCHLORIDE
     Indication: DYSPEPSIA
     Dosage: 150 MG, 3 TO 4X PER DAY
     Route: 065
     Dates: start: 200908, end: 201610
  2. RANITIDINE CAPSULE [Suspect]
     Active Substance: RANITIDINE
     Indication: DYSPEPSIA
     Dosage: 150 MG, 3 OR 4X DAILY? ALTERNATED W/ZANTAC + RANITIDINE
     Route: 065
     Dates: start: 201401, end: 201610
  3. RANITIDINE CAPSULE [Suspect]
     Active Substance: RANITIDINE
     Indication: INTESTINAL ULCER
  4. RANITIDINE CAPSULE [Suspect]
     Active Substance: RANITIDINE
     Indication: DYSPEPSIA
     Dosage: 75 MG, 3 TO 4X PER DAY
     Route: 065
     Dates: start: 201401, end: 201610
  5. RANITIDINE. [Suspect]
     Active Substance: RANITIDINE
     Indication: DYSPEPSIA
     Dosage: 75 MG, 3 OR 4X DAILY? ALTERNATED W/ZANTAC + RANITIDINE
     Route: 065
     Dates: start: 201401, end: 201610
  6. ZANTAC [Suspect]
     Active Substance: RANITIDINE HYDROCHLORIDE
     Indication: DYSPEPSIA
     Dosage: 75 MG, 3 TO 4X PER DAY
     Route: 065
     Dates: start: 200908, end: 201610
  7. ZANTAC [Suspect]
     Active Substance: RANITIDINE HYDROCHLORIDE
     Indication: INTESTINAL ULCER
  8. RANITIDINE CAPSULE [Suspect]
     Active Substance: RANITIDINE
     Indication: DYSPEPSIA
     Dosage: 150 MG, 3 OR 4X DAILY? ALTERNATED W/ZANTAC + RANITIDINE
     Route: 065
     Dates: start: 201401, end: 201610
  9. RANITIDINE CAPSULE [Suspect]
     Active Substance: RANITIDINE
     Indication: DYSPEPSIA
     Dosage: 150 MG, 3 TO 4X PER DAY
     Route: 065
     Dates: start: 200908, end: 201610
  10. RANITIDINE. [Suspect]
     Active Substance: RANITIDINE
     Indication: DYSPEPSIA
     Dosage: 150 MG, 3 OR 4X DAILY? ALTERNATED W/ZANTAC + RANITIDINE
     Route: 065
     Dates: start: 201401, end: 201610
  11. ZANTAC [Suspect]
     Active Substance: RANITIDINE HYDROCHLORIDE
     Indication: DYSPEPSIA
     Dosage: 75 MG, 3 TO 4X PER DAY
     Route: 065
     Dates: start: 200908, end: 201610
  12. RANITIDINE. [Suspect]
     Active Substance: RANITIDINE
     Indication: INTESTINAL ULCER
  13. ZANTAC [Suspect]
     Active Substance: RANITIDINE HYDROCHLORIDE
     Indication: DYSPEPSIA
     Dosage: 75 M, 3 TO 4X PER DAY
     Route: 065
     Dates: start: 200908, end: 201610
  14. ZANTAC [Suspect]
     Active Substance: RANITIDINE HYDROCHLORIDE
     Indication: DYSPEPSIA
     Dosage: 150 MG, 3 TO 4X PER DAY
     Route: 065
     Dates: start: 200908, end: 201610
  15. ZANTAC [Suspect]
     Active Substance: RANITIDINE HYDROCHLORIDE
     Indication: INTESTINAL ULCER
  16. ZANTAC [Suspect]
     Active Substance: RANITIDINE HYDROCHLORIDE
     Indication: INTESTINAL ULCER
  17. ZANTAC [Suspect]
     Active Substance: RANITIDINE HYDROCHLORIDE
     Indication: DYSPEPSIA
     Dosage: 150 MG, 3 TO 4X PER DAY
     Route: 065
     Dates: start: 200908, end: 201610
  18. RANITIDINE CAPSULE [Suspect]
     Active Substance: RANITIDINE
     Indication: INTESTINAL ULCER

REACTIONS (2)
  - Bladder cancer [Unknown]
  - Ovarian cancer [Unknown]
